FAERS Safety Report 4393206-1 (Version None)
Quarter: 2004Q3

REPORT INFORMATION
  Report Type: 
  Country: None (occurrence: None)
  Receive Date: 20040702
  Receipt Date: 20040618
  Transmission Date: 20050211
  Serious: Yes (Death)
  Sender: FDA-Public Use
  Company Number: CA-JNJFOC-20040106210

PATIENT
  Age: 70 Year
  Sex: Male
  Weight: 89.8122 kg

DRUGS (11)
  1. DITROPAN [Suspect]
     Indication: DRUG USE FOR UNKNOWN INDICATION
     Dosage: 5 MG, 1 IN  1 DAY, ORAL
     Route: 048
     Dates: start: 20040106, end: 20040116
  2. ZESTRIL [Concomitant]
  3. ADALAT [Concomitant]
  4. ALLOPURINOL [Concomitant]
  5. SENOKOT [Concomitant]
  6. LOPRESSOR SR (METOPROLOL TARTRATE) [Concomitant]
  7. NOVASEN (ACETYLSALICYLIC ACID) [Concomitant]
  8. VIOXX [Concomitant]
  9. LOSEC (OMEPRAZOLE) [Concomitant]
  10. EXTRA STRENGTH TYLENOL [Concomitant]
  11. DIABETA [Concomitant]

REACTIONS (3)
  - DYSURIA [None]
  - PROSTATE CANCER [None]
  - PROSTATIC PAIN [None]
